FAERS Safety Report 14370627 (Version 1)
Quarter: 2018Q1

REPORT INFORMATION
  Report Type: Spontaneous
  Country: US (occurrence: US)
  Receive Date: 20180110
  Receipt Date: 20180110
  Transmission Date: 20180509
  Serious: No
  Sender: FDA-Public Use
  Company Number: US-PFIZER INC-2018004940

PATIENT
  Sex: Male

DRUGS (4)
  1. HALCION [Suspect]
     Active Substance: TRIAZOLAM
     Indication: SLEEP DISORDER
     Dosage: 0.25 MG, 1X/DAY (AT NIGHT)
     Route: 048
  2. LINZESS [Concomitant]
     Active Substance: LINACLOTIDE
     Indication: IRRITABLE BOWEL SYNDROME
     Dosage: UNK
  3. TRAZODONE HYDROCHLORIDE. [Suspect]
     Active Substance: TRAZODONE HYDROCHLORIDE
     Indication: SLEEP DISORDER
     Dosage: 75 MG, 1X/DAY (AT NIGHT )
  4. KLONOPIN [Concomitant]
     Active Substance: CLONAZEPAM
     Indication: ANXIETY
     Dosage: 4 MG, UNK (THROUGHOUT THE DAY)

REACTIONS (7)
  - Balance disorder [Unknown]
  - Fall [Unknown]
  - Movement disorder [Unknown]
  - Memory impairment [Unknown]
  - Anxiety [Unknown]
  - Visual impairment [Unknown]
  - Vision blurred [Unknown]
